FAERS Safety Report 5926298-6 (Version None)
Quarter: 2008Q4

REPORT INFORMATION
  Report Type: 
  Country: None (occurrence: None)
  Receive Date: 20081017
  Receipt Date: 20081002
  Transmission Date: 20090506
  Serious: Yes (Hospitalization)
  Sender: FDA-Public Use
  Company Number: 2008S1017906

PATIENT
  Age: 59 Year
  Sex: Female

DRUGS (2)
  1. GLIMEPIRIDE [Suspect]
     Indication: MEDICATION ERROR
  2. ALPRAZOLAM MERCK [Concomitant]

REACTIONS (3)
  - ACCIDENTAL EXPOSURE [None]
  - HYPOGLYCAEMIC COMA [None]
  - MEDICATION ERROR [None]
